FAERS Safety Report 12655149 (Version 1)
Quarter: 2016Q3

REPORT INFORMATION
  Report Type: Spontaneous
  Country: JP (occurrence: JP)
  Receive Date: 20160816
  Receipt Date: 20160816
  Transmission Date: 20161109
  Serious: Yes (Other)
  Sender: FDA-Public Use
  Company Number: JP-OTSUKA-2016_019943

PATIENT
  Sex: Female

DRUGS (2)
  1. SAMSCA 30 MG [Suspect]
     Active Substance: TOLVAPTAN
     Dosage: 30 MG, UNK
     Route: 048
  2. SAMSCA 30 MG [Suspect]
     Active Substance: TOLVAPTAN
     Indication: CONGENITAL CYSTIC KIDNEY DISEASE
     Dosage: 60 MG, QD
     Route: 048

REACTIONS (1)
  - Hyponatraemia [Recovered/Resolved]
